FAERS Safety Report 10185281 (Version 5)
Quarter: 2014Q3

REPORT INFORMATION
  Report Type: Spontaneous
  Country: US (occurrence: US)
  Receive Date: 20140521
  Receipt Date: 20140812
  Transmission Date: 20150326
  Serious: Yes (Other)
  Sender: FDA-Public Use
  Company Number: US-PFIZER INC-2014136137

PATIENT
  Age: 65 Year
  Sex: Female

DRUGS (14)
  1. PRAVASTATIN SODIUM. [Concomitant]
     Active Substance: PRAVASTATIN SODIUM
     Dosage: UNK
  2. ASTEPRO [Concomitant]
     Active Substance: AZELASTINE HYDROCHLORIDE
     Dosage: UNK
  3. LEVOTHYROXINE SODIUM. [Concomitant]
     Active Substance: LEVOTHYROXINE SODIUM
     Dosage: UNK
  4. XYZAL [Concomitant]
     Active Substance: LEVOCETIRIZINE DIHYDROCHLORIDE
     Dosage: UNK
  5. EFFEXOR [Concomitant]
     Active Substance: VENLAFAXINE HYDROCHLORIDE
     Dosage: 75 MG, UNK
  6. SUTENT [Suspect]
     Active Substance: SUNITINIB MALATE
     Indication: RENAL CELL CARCINOMA
     Dosage: 50 MG, DAILY
     Route: 048
     Dates: start: 2013
  7. HYDROXYZINE HYDROCHLORIDE. [Concomitant]
     Active Substance: HYDROXYZINE HYDROCHLORIDE
     Dosage: UNK
  8. SUTENT [Suspect]
     Active Substance: SUNITINIB MALATE
     Dosage: 50 MG, DAILY
     Route: 048
     Dates: start: 20140410
  9. SUTENT [Suspect]
     Active Substance: SUNITINIB MALATE
     Dosage: 25 MG, Q DAY, CYCLIC 28 DAYS ON AND 14 DAYS OFF
     Route: 048
     Dates: start: 20140321, end: 201406
  10. HYDROCODONE / APAP [Concomitant]
     Dosage: UNK
  11. PHENERGAN [Concomitant]
     Active Substance: PROMETHAZINE HYDROCHLORIDE
     Dosage: UNK
  12. NASONEX [Concomitant]
     Active Substance: MOMETASONE FUROATE
     Dosage: UNK
  13. ZOLOFT [Concomitant]
     Active Substance: SERTRALINE HYDROCHLORIDE
     Dosage: 100 MG, UNK
  14. ZOFRAN [Concomitant]
     Active Substance: ONDANSETRON HYDROCHLORIDE
     Dosage: UNK

REACTIONS (7)
  - Platelet count decreased [Recovered/Resolved]
  - Urinary tract infection [Recovered/Resolved]
  - White blood cell count decreased [Recovered/Resolved]
  - Pancytopenia [Recovered/Resolved]
  - Fatigue [Unknown]
  - Renal cell carcinoma [Unknown]
  - Disease progression [Unknown]

NARRATIVE: CASE EVENT DATE: 2014
